FAERS Safety Report 20700625 (Version 1)
Quarter: 2022Q2

REPORT INFORMATION
  Report Type: Spontaneous
  Country: US (occurrence: US)
  Receive Date: 20220412
  Receipt Date: 20220412
  Transmission Date: 20220721
  Serious: No
  Sender: FDA-Public Use
  Company Number: US-BRISTOL-MYERS SQUIBB COMPANY-2022-015316

PATIENT
  Age: 84 Year
  Sex: Female
  Weight: 71.67 kg

DRUGS (1)
  1. ELIQUIS [Suspect]
     Active Substance: APIXABAN
     Indication: Pulmonary embolism
     Route: 048
     Dates: start: 20200321

REACTIONS (2)
  - Treatment noncompliance [Unknown]
  - Dysphonia [Unknown]

NARRATIVE: CASE EVENT DATE: 20200321
